FAERS Safety Report 8010025-5 (Version None)
Quarter: 2011Q4

REPORT INFORMATION
  Report Type: 
  Country: None (occurrence: None)
  Receive Date: 20111228
  Receipt Date: 20111215
  Transmission Date: 20120403
  Serious: Yes (Hospitalization)
  Sender: FDA-Public Use
  Company Number: US-UCBSA-046594

PATIENT
  Age: 52 Year
  Sex: Male
  Weight: 118 kg

DRUGS (37)
  1. CIMZIA [Suspect]
     Route: 058
     Dates: start: 20100609, end: 20100915
  2. CUBICIN [Concomitant]
     Dosage: 500MG;DOSAGE: 720MG  OVER 30MIN EVERY DAY FOR 4 WEEKS
     Route: 042
     Dates: end: 20110101
  3. TRILIPIX DR [Concomitant]
     Route: 048
  4. NEURONTIN [Concomitant]
     Dosage: 300MG=1CAPSULE
     Route: 048
     Dates: end: 20110101
  5. OXYCODONE HCL AND ACETAMINOPHEN [Concomitant]
     Dosage: 10/325
  6. VANCOMYCIN HYCHLORIDE [Concomitant]
     Dates: end: 20110101
  7. HOME OXYGEN [Concomitant]
     Dosage: DOSAGE:1
  8. METOPROLOL TARTRATE [Concomitant]
     Dosage: 25MG; DOSAGE:100MG=4 TAB
     Route: 048
  9. HYDRALAZINE HCL [Concomitant]
     Dosage: 25MG; DOSAGE: 37.5MG=1.5 TAB
     Route: 048
  10. FUROSEMIDE [Concomitant]
     Dosage: 80MG=1 TAB
     Route: 048
  11. INTEGRA [Concomitant]
     Dosage: 125MG
  12. PREDNISONE TAB [Concomitant]
     Indication: CROHN'S DISEASE
     Dosage: 10MG DAILY
     Route: 048
     Dates: start: 20080201, end: 20111014
  13. ACETAMINOPHEN [Concomitant]
     Indication: CROHN'S DISEASE
  14. PERCOCET [Concomitant]
     Dosage: 5MG-325MG; 1PO
     Route: 048
  15. VICTOZA [Concomitant]
     Dosage: 3-PAK; 0.6MG/0.1MG/3ML PEN
     Route: 058
  16. RENAGEL [Concomitant]
     Dosage: 1600MG=2 TAB; WITH MEALS
     Route: 048
  17. AVANDARYL [Concomitant]
     Dosage: 4MG-1MG
     Route: 048
  18. FLUTICASONE FUROATE [Concomitant]
  19. CUBICIN [Concomitant]
     Dosage: END DATE TO BE 19/DEC/2011
     Route: 042
     Dates: start: 20110101
  20. OXYCODONE HCL [Concomitant]
     Dosage: EVERY 6-8 HOURS AS NEEDED
     Route: 048
  21. JANUVIA [Concomitant]
     Dosage: 100MG
  22. PROMETHAZINE [Concomitant]
  23. OXYCONTIN [Concomitant]
     Dosage: 20MG
  24. OXACILLIN [Concomitant]
     Dates: end: 20110101
  25. NEURONTIN [Concomitant]
     Dates: start: 20110101
  26. CETIRIZINE [Concomitant]
     Dosage: 10MG
  27. ONDASETRON [Concomitant]
     Dosage: 8MG
  28. ZYVOX [Concomitant]
     Dosage: STOP DATE WAS TO BE ON 29/OCT/2011
     Route: 048
  29. NOVOLOG [Concomitant]
     Dosage: 100MG UNIT/ML VIAL .01ML=1UNIT
     Route: 058
  30. FLONASE [Concomitant]
     Dosage: 0.05%; 1SPRAY=50MCG
     Route: 045
  31. LISINOPRIL AND HYDROCHLOROTHIAZIDE [Concomitant]
  32. CIMZIA [Suspect]
     Indication: CROHN'S DISEASE
     Route: 058
     Dates: start: 20110111, end: 20110924
  33. CIMZIA [Suspect]
     Route: 058
     Dates: start: 20100428, end: 20100526
  34. PREDNISONE TAB [Concomitant]
     Dosage: 5MG DAILY
     Route: 048
     Dates: start: 20111001
  35. LEVAQUIN [Concomitant]
     Dosage: END DATE TO BE 27/OCT/2011
     Route: 048
  36. LEVEMIR [Concomitant]
     Dosage: EACH NIGHT AT BEDTIME; 100UNITS/ML VIAL (10U=0.1ML)
     Route: 058
  37. VENTOLIN HFA [Concomitant]

REACTIONS (2)
  - ACUTE RESPIRATORY DISTRESS SYNDROME [None]
  - STAPHYLOCOCCAL INFECTION [None]
